FAERS Safety Report 20836757 (Version 1)
Quarter: 2022Q2

REPORT INFORMATION
  Report Type: Spontaneous
  Country: IL (occurrence: IL)
  Receive Date: 20220517
  Receipt Date: 20220517
  Transmission Date: 20220721
  Serious: Yes (Other)
  Sender: FDA-Public Use
  Company Number: IL-NOVARTISPH-NVSC2022IL102871

PATIENT
  Sex: Female

DRUGS (1)
  1. COSENTYX [Suspect]
     Active Substance: SECUKINUMAB
     Indication: Paternal exposure timing unspecified
     Dosage: UNK (EXPOSURE VIA PARTNER)
     Route: 050

REACTIONS (4)
  - Premature rupture of membranes [Unknown]
  - Premature separation of placenta [Unknown]
  - Maternal exposure via partner during pregnancy [Unknown]
  - Normal newborn [Unknown]
